FAERS Safety Report 10586315 (Version 2)
Quarter: 2014Q4

REPORT INFORMATION
  Report Type: Report from Study
  Country: BR (occurrence: BR)
  Receive Date: 20141117
  Receipt Date: 20141212
  Transmission Date: 20150529
  Serious: Yes (Other)
  Sender: FDA-Public Use
  Company Number: BR-ORION CORPORATION ORION PHARMA-ENTC2014-0400

PATIENT
  Age: 81 Year
  Sex: Male

DRUGS (3)
  1. MANTIDAN [Concomitant]
     Active Substance: AMANTADINE HYDROCHLORIDE
     Route: 065
  2. SERTRALINE [Concomitant]
     Active Substance: SERTRALINE HYDROCHLORIDE
     Route: 065
  3. STALEVO [Suspect]
     Active Substance: CARBIDOPA\ENTACAPONE\LEVODOPA
     Indication: PARKINSON^S DISEASE
     Dosage: STRENGTH: 50/12.5/200 MG
     Route: 048

REACTIONS (8)
  - Bladder disorder [Recovering/Resolving]
  - Infection [Recovering/Resolving]
  - Wrong technique in drug usage process [Unknown]
  - Malaise [Recovering/Resolving]
  - Weight decreased [Recovering/Resolving]
  - Prostatic disorder [Unknown]
  - Urinary tract infection [Unknown]
  - Haemorrhage [Unknown]

NARRATIVE: CASE EVENT DATE: 201407
